FAERS Safety Report 9717018 (Version 1)
Quarter: 2013Q4

REPORT INFORMATION
  Report Type: Report from Study
  Country: CA (occurrence: CA)
  Receive Date: 20131127
  Receipt Date: 20131127
  Transmission Date: 20140711
  Serious: Yes (Other)
  Sender: FDA-Public Use
  Company Number: CA-JNJFOC-20131114254

PATIENT
  Sex: Female
  Weight: 81.65 kg

DRUGS (1)
  1. REMICADE [Suspect]
     Indication: CROHN^S DISEASE
     Route: 042
     Dates: start: 2012, end: 201306

REACTIONS (3)
  - Demyelination [Unknown]
  - Blood immunoglobulin G decreased [Unknown]
  - Arthralgia [Unknown]
